FAERS Safety Report 8952693 (Version 3)
Quarter: 2014Q1

REPORT INFORMATION
  Report Type: Report from Study
  Country: CH (occurrence: CH)
  Receive Date: 20121205
  Receipt Date: 20140317
  Transmission Date: 20141002
  Serious: Yes (Death, Life-Threatening)
  Sender: FDA-Public Use
  Company Number: CH-CELGENEUS-151-21880-12113632

PATIENT
  Age: 67 Year
  Sex: Male

DRUGS (10)
  1. REVLIMID [Suspect]
     Indication: B-CELL LYMPHOMA
     Dosage: 10 MILLIGRAM
     Route: 048
     Dates: start: 20121126, end: 20121127
  2. REVLIMID [Suspect]
     Dosage: 5-20
     Route: 048
  3. MABTHERA [Suspect]
     Indication: B-CELL LYMPHOMA
     Route: 041
     Dates: start: 20121126
  4. MABTHERA [Suspect]
     Route: 041
  5. RIBOMUSTIN [Suspect]
     Indication: B-CELL LYMPHOMA
     Route: 041
     Dates: start: 20121126
  6. RIBOMUSTIN [Suspect]
     Route: 041
  7. RIBOMUSTIN [Suspect]
     Route: 041
  8. RASBURICASE [Suspect]
     Indication: B-CELL LYMPHOMA
     Route: 041
     Dates: start: 20121126
  9. ASPIRINE [Concomitant]
     Indication: PRODUCT USED FOR UNKNOWN INDICATION
     Route: 065
     Dates: start: 201209
  10. OXYGEN [Concomitant]
     Indication: PRODUCT USED FOR UNKNOWN INDICATION
     Route: 065
     Dates: start: 201209

REACTIONS (2)
  - Subdural haematoma [Fatal]
  - Brain stem infarction [Fatal]
